FAERS Safety Report 6921736-4 (Version None)
Quarter: 2010Q3

REPORT INFORMATION
  Report Type: 
  Country: None (occurrence: None)
  Receive Date: 20100812
  Receipt Date: 20100810
  Transmission Date: 20110219
  Serious: Yes (Hospitalization)
  Sender: FDA-Public Use
  Company Number: US-GILEAD-2010-0030898

PATIENT
  Sex: Male
  Weight: 83.99 kg

DRUGS (28)
  1. LETAIRIS [Suspect]
     Indication: PULMONARY ARTERIAL HYPERTENSION
     Route: 048
     Dates: start: 20100622
  2. AMOXICILLIN [Concomitant]
  3. HYDRALAZINE HCL [Concomitant]
  4. SINGULAIR [Concomitant]
  5. COSOPT EYE DROPS [Concomitant]
  6. MIRAPEX [Concomitant]
  7. XALATAN [Concomitant]
  8. ALPHAGAN [Concomitant]
  9. XYZAL [Concomitant]
  10. LASIX [Concomitant]
  11. METOPROLOL [Concomitant]
  12. GABAPENTIN [Concomitant]
  13. SIMVASTATIN [Concomitant]
  14. ISOSORBIDE [Concomitant]
  15. ADVAIR DISKUS 100/50 [Concomitant]
  16. GAVISCON [Concomitant]
  17. FISH OIL [Concomitant]
  18. BENICAR [Concomitant]
  19. COQ10 [Concomitant]
  20. PLAVIX [Concomitant]
  21. PROAIR HFA [Concomitant]
  22. MAGNESIUM OXIDE [Concomitant]
  23. WARFARIN [Concomitant]
  24. ASPIRIN [Concomitant]
  25. FERROUS SULFATE [Concomitant]
  26. OMNARIS [Concomitant]
  27. PROTONIX [Concomitant]
  28. MULTI-VITAMINS [Concomitant]

REACTIONS (1)
  - CARDIAC FAILURE CONGESTIVE [None]
